FAERS Safety Report 8472998 (Version 4)
Quarter: 2013Q2

REPORT INFORMATION
  Report Type: Spontaneous
  Country: US (occurrence: US)
  Receive Date: 20120322
  Receipt Date: 20130416
  Transmission Date: 20140414
  Serious: Yes (Hospitalization)
  Sender: FDA-Public Use
  Company Number: US-ASTRAZENECA-2011SE71014

PATIENT
  Age: 74 Year
  Sex: Female

DRUGS (3)
  1. NEXIUM [Suspect]
     Route: 048
  2. OMEPRAZOLE [Suspect]
     Route: 048
  3. WELLBUTRIN [Concomitant]

REACTIONS (9)
  - Diabetes mellitus [Unknown]
  - Gastrooesophageal reflux disease [Unknown]
  - Nasopharyngitis [Unknown]
  - Dyspepsia [Unknown]
  - Vomiting [Unknown]
  - Abdominal discomfort [Unknown]
  - Aphagia [Unknown]
  - Drug dose omission [Unknown]
  - Drug ineffective [Unknown]
